FAERS Safety Report 4667462-6 (Version None)
Quarter: 2005Q2

REPORT INFORMATION
  Report Type: 
  Country: None (occurrence: None)
  Receive Date: 20050520
  Receipt Date: 20050407
  Transmission Date: 20051028
  Serious: Yes (Other)
  Sender: FDA-Public Use
  Company Number: US-BOEHRINGER INGELHEIM PHARMACEUTICALS, INC.-2005-BP-05776BP

PATIENT
  Sex: Male

DRUGS (23)
  1. SPIRIVA [Suspect]
     Indication: DYSPNOEA
     Route: 055
     Dates: start: 20040601
  2. BETAPACE [Concomitant]
     Route: 048
  3. FOLATOL [Concomitant]
     Route: 048
  4. CILOSTAZOL [Concomitant]
     Route: 048
  5. FLOMAX [Concomitant]
     Route: 048
  6. NEXIUM [Concomitant]
     Route: 048
  7. LASIX [Concomitant]
     Route: 048
  8. POTASSIUM CHLORIDE [Concomitant]
     Route: 048
  9. NORVASC [Concomitant]
     Route: 048
  10. ECOTRIN [Concomitant]
     Route: 048
  11. MOBIC [Concomitant]
     Route: 048
  12. UTRIA [Concomitant]
     Route: 048
  13. TRICOR [Concomitant]
     Route: 048
  14. FLUCONAZOLE [Concomitant]
     Route: 048
  15. CLOTRIMAZOLE [Concomitant]
     Route: 048
  16. ZOCOR [Concomitant]
     Route: 048
  17. SEREVENT [Concomitant]
     Route: 048
  18. SINGULAIR [Concomitant]
     Route: 048
  19. CLARINEX [Concomitant]
     Route: 048
  20. ALBUTEROL [Concomitant]
     Route: 055
  21. CLONIDINE [Concomitant]
     Route: 048
  22. NITROQUICK [Concomitant]
     Route: 048
  23. ALPRAZOLAMPAN [Concomitant]
     Route: 048

REACTIONS (6)
  - AGEUSIA [None]
  - CANDIDIASIS [None]
  - CONDITION AGGRAVATED [None]
  - DRY MOUTH [None]
  - SALIVARY GLAND CANCER [None]
  - TINNITUS [None]
